FAERS Safety Report 16525572 (Version 1)
Quarter: 2019Q3

REPORT INFORMATION
  Report Type: Spontaneous
  Country: US (occurrence: US)
  Receive Date: 20190703
  Receipt Date: 20190703
  Transmission Date: 20191004
  Serious: No
  Sender: FDA-Public Use
  Company Number: US-SA-2019SA172116

PATIENT
  Age: 82 Year
  Sex: Male

DRUGS (1)
  1. TOUJEO [Suspect]
     Active Substance: INSULIN GLARGINE
     Indication: TYPE 2 DIABETES MELLITUS
     Dosage: 30UNITS IN AM AND 15UNITS IN PM
     Route: 065

REACTIONS (5)
  - Hunger [Unknown]
  - Gait disturbance [Unknown]
  - Asthenia [Unknown]
  - Blood glucose increased [Unknown]
  - Off label use [Unknown]
